FAERS Safety Report 4890504-X (Version None)
Quarter: 2006Q1

REPORT INFORMATION
  Report Type: 
  Country: None (occurrence: None)
  Receive Date: 20060123
  Receipt Date: 20060123
  Transmission Date: 20060701
  Serious: Yes (Hospitalization, Other)
  Sender: FDA-Public Use
  Company Number: None

PATIENT
  Sex: Female
  Weight: 88.6 kg

DRUGS (2)
  1. CELEBREX [Suspect]
     Indication: CERVIX CARCINOMA
     Dosage: SEE IMAGE
     Route: 048
     Dates: start: 20040209, end: 20040211
  2. RESTORIL [Concomitant]

REACTIONS (10)
  - ANAEMIA [None]
  - CEREBRAL ARTERY THROMBOSIS [None]
  - CEREBRAL INFARCTION [None]
  - COORDINATION ABNORMAL [None]
  - DYSARTHRIA [None]
  - FEELING ABNORMAL [None]
  - HEMIPARESIS [None]
  - HEMIPLEGIA [None]
  - NEUTROPENIA [None]
  - VISUAL DISTURBANCE [None]
